FAERS Safety Report 8414656-X (Version None)
Quarter: 2012Q2

REPORT INFORMATION
  Report Type: 
  Country: None (occurrence: None)
  Receive Date: 20120605
  Receipt Date: 20120521
  Transmission Date: 20120825
  Serious: Yes (Other)
  Sender: FDA-Public Use
  Company Number: IT-WATSON-2012-09377

PATIENT
  Age: 3 Year
  Sex: Male

DRUGS (1)
  1. IBUPROFEN [Suspect]
     Indication: PRODUCT USED FOR UNKNOWN INDICATION
     Dosage: SHORT-TERM
     Route: 048

REACTIONS (4)
  - OBSTRUCTION GASTRIC [None]
  - GASTRIC ULCER [None]
  - PREPYLORIC STENOSIS [None]
  - GASTRITIS HAEMORRHAGIC [None]
